FAERS Safety Report 25951922 (Version 1)
Quarter: 2025Q4

REPORT INFORMATION
  Report Type: Spontaneous
  Country: US (occurrence: US)
  Receive Date: 20251023
  Receipt Date: 20251023
  Transmission Date: 20260119
  Serious: No
  Sender: GLAND PHARMA LTD
  Company Number: US-GLANDPHARMA-US-2025GLNSPO01937

PATIENT

DRUGS (1)
  1. METHOCARBAMOL [Suspect]
     Active Substance: METHOCARBAMOL
     Indication: Product used for unknown indication
     Route: 065

REACTIONS (1)
  - Insomnia [Recovered/Resolved]
